FAERS Safety Report 17349276 (Version 1)
Quarter: 2020Q1

REPORT INFORMATION
  Report Type: Report from Study
  Country: None (occurrence: CO)
  Receive Date: 20200130
  Receipt Date: 20200130
  Transmission Date: 20200409
  Serious: Yes (Death, Other)
  Sender: FDA-Public Use
  Company Number: CO-ABBVIE-20K-036-3254010-00

PATIENT
  Age: 4 Month
  Sex: Female

DRUGS (1)
  1. SYNAGIS [Suspect]
     Active Substance: PALIVIZUMAB
     Indication: PREMATURE BABY
     Route: 050
     Dates: start: 20191018, end: 20191113

REACTIONS (5)
  - Abdominal operation [Unknown]
  - Cardiac operation [Unknown]
  - Tracheal operation [Unknown]
  - Diaphragmatic operation [Unknown]
  - Death [Fatal]

NARRATIVE: CASE EVENT DATE: 20200113
